FAERS Safety Report 5957483-5 (Version None)
Quarter: 2008Q4

REPORT INFORMATION
  Report Type: 
  Country: None (occurrence: None)
  Receive Date: 20081114
  Receipt Date: 20081106
  Transmission Date: 20090506
  Serious: Yes (Hospitalization)
  Sender: FDA-Public Use
  Company Number: SPV1-2008-02460

PATIENT
  Age: 63 Year
  Sex: Female
  Weight: 90.2 kg

DRUGS (18)
  1. FOSRENOL [Suspect]
     Indication: HYPERPHOSPHATAEMIA
     Dosage: 2000 MG, 3X/DAY:TID, ORAL
     Route: 048
     Dates: start: 20080701
  2. LANTUS [Concomitant]
  3. NOVOLIN /00030501/ (INSULIN) [Concomitant]
  4. NIFEDIPINE [Concomitant]
  5. PLAVIX [Concomitant]
  6. QUININE (QUININE) [Concomitant]
  7. ZETIA [Concomitant]
  8. NEPHROVITE (ASCORBIC ACID,BIOTIN,CALCIUM PANTOTHENATE, CYANOCOBALAMIN, [Concomitant]
  9. IMDUR [Concomitant]
  10. ACIPHEX [Concomitant]
  11. LOPID [Concomitant]
  12. COREG [Concomitant]
  13. BROMFED (BROMPHENIRAMINE MALEATE,PSEUDOEPHEDRINE HYDROCHLORIDE) [Concomitant]
  14. LOPRESSOR [Concomitant]
  15. SYNTHROID [Concomitant]
  16. DIOVAN [Concomitant]
  17. LIPITOR [Concomitant]
  18. ALLOPURINOL [Concomitant]

REACTIONS (2)
  - CHEST PAIN [None]
  - VOMITING [None]
